FAERS Safety Report 11754054 (Version 1)
Quarter: 2015Q4

REPORT INFORMATION
  Report Type: Spontaneous
  Country: US (occurrence: US)
  Receive Date: 20151119
  Receipt Date: 20151119
  Transmission Date: 20160304
  Serious: No
  Sender: FDA-Public Use
  Company Number: US-BAXALTA-2015BLT002791

PATIENT
  Age: 73 Year
  Sex: Female

DRUGS (1)
  1. GAMMAGARD LIQUID [Suspect]
     Active Substance: HUMAN IMMUNOGLOBULIN G
     Indication: PRODUCT USED FOR UNKNOWN INDICATION
     Dosage: 10 G, UNK
     Route: 058
     Dates: start: 20151115

REACTIONS (5)
  - Malaise [Recovering/Resolving]
  - Abdominal pain [Recovering/Resolving]
  - Infusion site pruritus [Recovering/Resolving]
  - Headache [Recovering/Resolving]
  - Infusion site swelling [Unknown]

NARRATIVE: CASE EVENT DATE: 20151115
